FAERS Safety Report 9854803 (Version 2)
Quarter: 2014Q1

REPORT INFORMATION
  Report Type: Spontaneous
  Country: US (occurrence: US)
  Receive Date: 20140130
  Receipt Date: 20140130
  Transmission Date: 20141002
  Serious: Yes (Hospitalization)
  Sender: FDA-Public Use
  Company Number: 2013SP008146

PATIENT
  Age: 60 Year
  Sex: Female
  Weight: 55.1 kg

DRUGS (19)
  1. CYTARABINE [Suspect]
     Indication: ACUTE MYELOID LEUKAEMIA
     Route: 058
     Dates: start: 20121108, end: 20121214
  2. CYTARABINE [Suspect]
     Indication: ACUTE MYELOID LEUKAEMIA
     Route: 042
     Dates: start: 20130111
  3. IDARUBICIN [Suspect]
     Indication: ACUTE MYELOID LEUKAEMIA
     Route: 042
     Dates: start: 20130111
  4. CLOFARABINE [Suspect]
     Indication: ACUTE MYELOID LEUKAEMIA
     Route: 042
     Dates: start: 20130111
  5. ULTRAM [Concomitant]
     Indication: PAIN
  6. XANAX [Concomitant]
     Indication: ANXIETY
  7. CYCLOBENZAPRINE HYDROCHLORIDE [Concomitant]
     Indication: MUSCLE SPASMS
  8. LIDOCAINE HYDROCHLORIDE [Concomitant]
     Indication: BACK PAIN
  9. TEMAZEPAM [Concomitant]
     Indication: SOMNOLENCE
  10. CYMBALTA [Concomitant]
  11. FOLIC ACID [Concomitant]
     Indication: SUPPLEMENTATION THERAPY
  12. AMBISOME [Concomitant]
     Indication: ANTIFUNGAL PROPHYLAXIS
  13. PRED-FORTE [Concomitant]
     Indication: CHEMOTHERAPY
     Dates: start: 20120117, end: 20120119
  14. HYDROCHLOROTHIAZIDE [Concomitant]
     Indication: HYPERTENSION
  15. KLOR-CON [Concomitant]
     Indication: SUPPLEMENTATION THERAPY
  16. METOPROLOL SUCCINATE [Concomitant]
     Indication: HYPERTENSION
  17. OMEPRAZOLE [Concomitant]
     Indication: HYPERCHLORHYDRIA
  18. VALTREX [Concomitant]
     Indication: ANTIVIRAL PROPHYLAXIS
  19. AVELOX [Concomitant]

REACTIONS (1)
  - Febrile neutropenia [Recovered/Resolved]
